FAERS Safety Report 8826418 (Version 1)
Quarter: 2012Q4

REPORT INFORMATION
  Report Type: 
  Country: TR (occurrence: TR)
  Receive Date: 20121005
  Receipt Date: 20121005
  Transmission Date: 20130627
  Serious: Yes (Other)
  Sender: FDA-Public Use
  Company Number: PHHY2012TR085988

PATIENT
  Sex: Female

DRUGS (5)
  1. CICLOSPORIN [Suspect]
     Dosage: (Maternal dose: 3 mg/kg/day)
     Route: 064
  2. CICLOSPORIN [Suspect]
     Dosage: (Maternal dose: 4 mg/kg/day)
     Route: 064
  3. PREDNISOLONE [Suspect]
     Dosage: (Maternal dose: 2 mg/kg/day)
     Route: 064
  4. IMMUNOGLOBULINS [Suspect]
     Dosage: (Maternal dose: 0.3 g/kg/day)
     Route: 064
  5. IMMUNOGLOBULINS [Suspect]
     Dosage: (Maternal dose: 0.7 g/kg/day)
     Route: 064

REACTIONS (5)
  - Low birth weight baby [Unknown]
  - Intraventricular haemorrhage [Unknown]
  - Premature baby [Unknown]
  - Neonatal infection [Unknown]
  - Foetal exposure during pregnancy [Unknown]
